FAERS Safety Report 8121295-7 (Version None)
Quarter: 2012Q1

REPORT INFORMATION
  Report Type: 
  Country: None (occurrence: None)
  Receive Date: 20120203
  Receipt Date: 20120121
  Transmission Date: 20120608
  Serious: Yes (Hospitalization)
  Sender: FDA-Public Use
  Company Number: 2012AP000191

PATIENT
  Sex: Male

DRUGS (1)
  1. CITALOPRAM HYDROBROMIDE [Suspect]
     Indication: PRODUCT USED FOR UNKNOWN INDICATION
     Dosage: 40 MG, TRPL, QD
     Route: 064

REACTIONS (8)
  - TREMOR NEONATAL [None]
  - FOETAL EXPOSURE DURING PREGNANCY [None]
  - NASAL FLARING [None]
  - HYPERTONIA NEONATAL [None]
  - BLOOD GLUCOSE DECREASED [None]
  - FEELING JITTERY [None]
  - NEONATAL DISORDER [None]
  - NEONATAL RESPIRATORY DISTRESS SYNDROME [None]
